FAERS Safety Report 4928826-6 (Version None)
Quarter: 2006Q1

REPORT INFORMATION
  Report Type: 
  Country: None (occurrence: None)
  Receive Date: 20060228
  Receipt Date: 20060228
  Transmission Date: 20060701
  Serious: Yes (Life-Threatening, Hospitalization)
  Sender: FDA-Public Use
  Company Number: None

PATIENT
  Age: 66 Year
  Sex: Female
  Weight: 63.05 kg

DRUGS (2)
  1. RISPERDAL [Suspect]
     Indication: DEMENTIA ALZHEIMER'S TYPE
     Dosage: DAILY AND EVERY 2 WK IM
     Route: 030
     Dates: start: 20060113, end: 20060202
  2. RISPERDAL [Suspect]
     Indication: PSYCHOTIC DISORDER
     Dosage: DAILY AND EVERY 2 WK IM
     Route: 030
     Dates: start: 20060113, end: 20060202

REACTIONS (2)
  - NEUROLEPTIC MALIGNANT SYNDROME [None]
  - PAIN [None]
